FAERS Safety Report 10717742 (Version 3)
Quarter: 2015Q1

REPORT INFORMATION
  Report Type: Spontaneous
  Country: US (occurrence: US)
  Receive Date: 20150116
  Receipt Date: 20150224
  Transmission Date: 20150721
  Serious: Yes (Hospitalization, Other)
  Sender: FDA-Public Use
  Company Number: US-PFIZER INC-2015014818

PATIENT
  Age: 80 Year
  Sex: Male
  Weight: 79 kg

DRUGS (6)
  1. ADVIL [Suspect]
     Active Substance: IBUPROFEN
     Indication: ARTHRALGIA
     Dosage: 200 MG, EVERY 4-6 HOURS
     Route: 048
     Dates: start: 20141222, end: 20150107
  2. SIMVASTATIN. [Concomitant]
     Active Substance: SIMVASTATIN
     Indication: BLOOD CHOLESTEROL
     Dosage: 40 MG, 1X/DAY AT BEDTIME
     Route: 048
  3. NOVOLIN N [Concomitant]
     Active Substance: INSULIN HUMAN
     Indication: DIABETES MELLITUS
     Dosage: 13 IU AS MORNING DOSE AND 12 IU AS EVENING DOSE
  4. TUMS [Concomitant]
     Active Substance: CALCIUM CARBONATE
     Indication: DYSPEPSIA
     Dosage: UNK, AS NEEDED
     Dates: start: 20150108
  5. NOVOLIN R [Concomitant]
     Active Substance: INSULIN HUMAN
     Indication: DIABETES MELLITUS
     Dosage: 9 IU AS MORNING DOSE AND 8 IU AS EVENING DOSE
  6. METFORMIN HYDROCHLORIDE. [Concomitant]
     Active Substance: METFORMIN HYDROCHLORIDE
     Indication: DIABETES MELLITUS
     Dosage: 1000 MG, 2X/DAY (MORNING AND NIGHT)

REACTIONS (6)
  - Blood glucose increased [Unknown]
  - Abdominal pain upper [Recovering/Resolving]
  - Anaemia [Unknown]
  - Faeces discoloured [Recovering/Resolving]
  - Internal haemorrhage [Not Recovered/Not Resolved]
  - Gastrointestinal haemorrhage [Unknown]

NARRATIVE: CASE EVENT DATE: 20141226
